FAERS Safety Report 4357866-3 (Version None)
Quarter: 2004Q2

REPORT INFORMATION
  Report Type: 
  Country: None (occurrence: None)
  Receive Date: 20040513
  Receipt Date: 20040513
  Transmission Date: 20050107
  Serious: Yes (Other)
  Sender: FDA-Public Use
  Company Number: None

PATIENT
  Sex: Female
  Weight: 21.9 kg

DRUGS (1)
  1. ASPARAGINASE 10000 IU / VIAL MERCK AND CO., INC [Suspect]
     Indication: ACUTE LYMPHOCYTIC LEUKAEMIA
     Dosage: 22,000 IU PER PROTOC INTRAMUSCULAR
     Route: 030
     Dates: start: 20031008, end: 20040511

REACTIONS (2)
  - INJECTION SITE ERYTHEMA [None]
  - INJECTION SITE RASH [None]
